FAERS Safety Report 7366349-8 (Version None)
Quarter: 2011Q1

REPORT INFORMATION
  Report Type: 
  Country: None (occurrence: None)
  Receive Date: 20110322
  Receipt Date: 20110308
  Transmission Date: 20110831
  Serious: Yes (Hospitalization)
  Sender: FDA-Public Use
  Company Number: US-JNJFOC-20080402389

PATIENT
  Sex: Male
  Weight: 49 kg

DRUGS (8)
  1. REMICADE [Suspect]
     Route: 042
  2. METRONIDAZOLE [Concomitant]
  3. REMICADE [Suspect]
     Route: 042
  4. REMICADE [Suspect]
     Indication: CROHN'S DISEASE
     Dosage: TOTAL 8 DOSES
     Route: 042
  5. REMICADE [Suspect]
     Indication: FISTULA
     Dosage: TOTAL 8 DOSES
     Route: 042
  6. MESALAMINE [Concomitant]
  7. MIRALAX [Concomitant]
  8. CIPRO [Concomitant]

REACTIONS (2)
  - ANAL ABSCESS [None]
  - ANAL FISTULA [None]
